FAERS Safety Report 5002391-X (Version None)
Quarter: 2006Q2

REPORT INFORMATION
  Report Type: 
  Country: None (occurrence: None)
  Receive Date: 20060512
  Receipt Date: 20060426
  Transmission Date: 20061013
  Serious: Yes (Other)
  Sender: FDA-Public Use
  Company Number: OMPQ-PR-0604L-0270 (1)

PATIENT
  Age: 83 Year
  Sex: Male

DRUGS (5)
  1. OMNIPAQUE 140 [Suspect]
     Dosage: 20 ML, SINGLE DOSE, I.V.
     Route: 042
  2. DIPYRIDAMOLE/ASPIRIN 200/25 [Concomitant]
  3. ATORVASTATIN [Concomitant]
  4. TAMSULOSIN HCL [Concomitant]
  5. ASPIRIN [Concomitant]

REACTIONS (6)
  - BLOOD THYROID STIMULATING HORMONE DECREASED [None]
  - BLOOD THYROID STIMULATING HORMONE INCREASED [None]
  - THYROXINE FREE DECREASED [None]
  - THYROXINE FREE INCREASED [None]
  - TRI-IODOTHYRONINE DECREASED [None]
  - TRI-IODOTHYRONINE INCREASED [None]
